FAERS Safety Report 5655703-8 (Version None)
Quarter: 2008Q1

REPORT INFORMATION
  Report Type: 
  Country: None (occurrence: None)
  Receive Date: 20080307
  Receipt Date: 20080304
  Transmission Date: 20080703
  Serious: Yes (Death, Hospitalization, Other)
  Sender: FDA-Public Use
  Company Number: BE-ABBOTT-08P-013-0440828-00

PATIENT
  Age: 42 Year
  Sex: Female

DRUGS (11)
  1. CICLOSPORIN [Suspect]
     Indication: DRUG USE FOR UNKNOWN INDICATION
     Dosage: NOT REPORTED
  2. CICLOSPORIN [Suspect]
     Dosage: NOT REPORTED
  3. CICLOSPORIN [Suspect]
  4. TACROLIMUS [Suspect]
     Indication: INFECTION PROPHYLAXIS
  5. TACROLIMUS [Suspect]
     Dosage: DOSE REDUCING
  6. METHYLPREDNISOLONE [Concomitant]
     Indication: IMMUNOSUPPRESSANT DRUG THERAPY
  7. METHYLPREDNISOLONE [Concomitant]
  8. CEFEPIME [Concomitant]
     Indication: INFECTION PROPHYLAXIS
     Dosage: NOT REPORTED
  9. METRONIDAZOLE HCL [Concomitant]
     Indication: INFECTION PROPHYLAXIS
  10. METRONIDAZOLE HCL [Concomitant]
  11. MYCOPHENOLATE MOFETIL [Concomitant]
     Indication: DRUG USE FOR UNKNOWN INDICATION
     Dosage: NOT REPORTED

REACTIONS (1)
  - NEUROTOXICITY [None]
